FAERS Safety Report 15627213 (Version 3)
Quarter: 2019Q1

REPORT INFORMATION
  Report Type: Spontaneous
  Country: JP (occurrence: JP)
  Receive Date: 20181116
  Receipt Date: 20190110
  Transmission Date: 20190417
  Serious: Yes (Death, Hospitalization)
  Sender: FDA-Public Use
  Company Number: JP-ASTRAZENECA-2018SF49091

PATIENT
  Age: 59 Year
  Sex: Male

DRUGS (1)
  1. IMFINZI [Suspect]
     Active Substance: DURVALUMAB
     Indication: NON-SMALL CELL LUNG CANCER
     Route: 041
     Dates: start: 20181011, end: 20181025

REACTIONS (2)
  - Respiratory failure [Recovering/Resolving]
  - Radiation pneumonitis [Fatal]

NARRATIVE: CASE EVENT DATE: 20181106
